FAERS Safety Report 8126031-6 (Version None)
Quarter: 2012Q1

REPORT INFORMATION
  Report Type: 
  Country: None (occurrence: None)
  Receive Date: 20120209
  Receipt Date: 20120206
  Transmission Date: 20120608
  Serious: Yes (Death, Life-Threatening)
  Sender: FDA-Public Use
  Company Number: US-ASTRAZENECA-2011SE70578

PATIENT
  Age: 58 Year
  Sex: Female

DRUGS (2)
  1. SYMBICORT [Suspect]
     Indication: EMPHYSEMA
     Dosage: 160/4.5 MCG, TWO PUFFS, TWO TIMES A DAY
     Route: 055
     Dates: start: 20100101
  2. ATROVENT [Concomitant]
     Indication: EMPHYSEMA
     Dosage: TWO PUFFS, TWO TIMES A DAY
     Route: 055
     Dates: start: 20100101

REACTIONS (6)
  - ACUTE RESPIRATORY FAILURE [None]
  - OFF LABEL USE [None]
  - MUSCULOSKELETAL PAIN [None]
  - CARDIAC ARREST [None]
  - RESPIRATORY ACIDOSIS [None]
  - OROPHARYNGEAL PAIN [None]
